FAERS Safety Report 24160182 (Version 1)
Quarter: 2024Q3

REPORT INFORMATION
  Report Type: Spontaneous
  Country: CH (occurrence: None)
  Receive Date: 20240801
  Receipt Date: 20240801
  Transmission Date: 20241017
  Serious: Yes (Hospitalization, Other)
  Sender: MDD OPERATIONS
  Company Number: CH-MDD US Operations-MDD202407-002636

PATIENT
  Age: 54 Year
  Sex: Male

DRUGS (9)
  1. APOMORPHINE HYDROCHLORIDE [Suspect]
     Active Substance: APOMORPHINE HYDROCHLORIDE
     Indication: Parkinson^s disease
  2. APOMORPHINE HYDROCHLORIDE [Suspect]
     Active Substance: APOMORPHINE HYDROCHLORIDE
     Route: 058
  3. LEVODOPA [Concomitant]
     Active Substance: LEVODOPA
     Indication: Parkinson^s disease
     Dosage: NOT PROVIDED
  4. OPICAPONE [Concomitant]
     Active Substance: OPICAPONE
     Indication: Parkinson^s disease
     Dosage: NOT PROVIDED
  5. TADALAFIL [Concomitant]
     Active Substance: TADALAFIL
     Indication: Pulmonary hypertension
     Dosage: NOT PROVIDED
  6. MACITENTAN [Concomitant]
     Active Substance: MACITENTAN
     Indication: Pulmonary hypertension
     Dosage: NOT PROVIDED
  7. SELEXIPAG [Concomitant]
     Active Substance: SELEXIPAG
     Indication: Pulmonary hypertension
     Dosage: NOT PROVIDED
  8. SEVOFLURANE [Concomitant]
     Active Substance: SEVOFLURANE
     Dosage: NOT PROVIDED
  9. REMIFENTANIL [Concomitant]
     Active Substance: REMIFENTANIL
     Dosage: NOT PROVIDED

REACTIONS (5)
  - Status epilepticus [Recovered/Resolved]
  - Generalised tonic-clonic seizure [Recovered/Resolved]
  - Depressed level of consciousness [Recovered/Resolved]
  - Loss of consciousness [Recovered/Resolved]
  - Dopamine agonist withdrawal syndrome [Recovered/Resolved]
